FAERS Safety Report 4993831-0 (Version None)
Quarter: 2006Q2

REPORT INFORMATION
  Report Type: 
  Country: None (occurrence: None)
  Receive Date: 20060503
  Receipt Date: 20060422
  Transmission Date: 20061013
  Serious: Yes (Other)
  Sender: FDA-Public Use
  Company Number: 13943

PATIENT
  Age: 44 Year
  Sex: Female

DRUGS (6)
  1. MORPHINE [Suspect]
     Indication: SPINAL ANAESTHESIA
     Dosage: 100 MICROGRAM ONCE ISP
  2. BUPIVACAINE [Concomitant]
  3. MIDAZOLAM HCL [Concomitant]
  4. DROPERIDOL [Concomitant]
  5. FENTANYL [Concomitant]
  6. ONDANSETRON HCL [Concomitant]

REACTIONS (3)
  - HYPERHIDROSIS [None]
  - HYPOTHERMIA [None]
  - SOMNOLENCE [None]
